FAERS Safety Report 6539225-8 (Version None)
Quarter: 2010Q1

REPORT INFORMATION
  Report Type: 
  Country: None (occurrence: None)
  Receive Date: 20100115
  Receipt Date: 20100112
  Transmission Date: 20100710
  Serious: Yes (Other)
  Sender: FDA-Public Use
  Company Number: US-SANOFI-AVENTIS-2010SA001921

PATIENT
  Sex: Female

DRUGS (7)
  1. PLAVIX [Suspect]
     Route: 048
  2. DILTIAZEM [Concomitant]
  3. DIGOXIN [Concomitant]
  4. ZOLOFT [Concomitant]
  5. GLIPIZIDE [Concomitant]
  6. ESTRACE ^MEAD JOHNSON^ [Concomitant]
  7. COUMADIN [Concomitant]
     Dates: end: 20090701

REACTIONS (1)
  - ARTERIAL OCCLUSIVE DISEASE [None]
